FAERS Safety Report 9026274 (Version 1)
Quarter: 2013Q1

REPORT INFORMATION
  Report Type: Spontaneous
  Country: AU (occurrence: None)
  Receive Date: 20130104
  Receipt Date: 20130104
  Transmission Date: 20140127
  Serious: Yes (Death, Other)
  Sender: FDA-Public Use
  Company Number: 2012P1068304

PATIENT
  Age: 12 Year
  Sex: Male

DRUGS (3)
  1. DEXAMETHASONE [Suspect]
     Indication: GLIOBLASTOMA
     Dates: start: 200910, end: 201008
  2. BEVACIZUMAB [Suspect]
     Indication: GLIOBLASTOMA
     Dates: start: 201004, end: 201007
  3. IRINOTECAN [Concomitant]

REACTIONS (3)
  - Skin striae [None]
  - Neurological decompensation [None]
  - Muscular weakness [None]
